FAERS Safety Report 14881930 (Version 1)
Quarter: 2018Q2

REPORT INFORMATION
  Report Type: Spontaneous
  Country: US (occurrence: US)
  Receive Date: 20180425
  Receipt Date: 20180425
  Transmission Date: 20180711
  Serious: No
  Sender: FDA-Public Use
  Company Number: None

PATIENT
  Age: 35 Year
  Sex: Female

DRUGS (1)
  1. GLATIRAMER 20MG PFS INJ (30/BOX) [Suspect]
     Active Substance: GLATIRAMER

REACTIONS (4)
  - Injection site rash [None]
  - Injection site bruising [None]
  - Pruritus [None]
  - Injection site pain [None]

NARRATIVE: CASE EVENT DATE: 20151001
